FAERS Safety Report 5474725-3 (Version None)
Quarter: 2007Q3

REPORT INFORMATION
  Report Type: 
  Country: None (occurrence: None)
  Receive Date: 20070927
  Receipt Date: 20070927
  Transmission Date: 20080115
  Serious: Yes (Other)
  Sender: FDA-Public Use
  Company Number: None

PATIENT
  Age: 62 Year
  Sex: Female
  Weight: 52.1637 kg

DRUGS (2)
  1. ZYVOX [Suspect]
     Indication: STAPHYLOCOCCAL INFECTION
     Dosage: 600MG Q 12 H IV MORE THAN 1 WEEK
     Route: 042
  2. CYMBALTA [Suspect]
     Indication: NEURALGIA
     Dosage: 120MG BID PO MORE THAN 1 MONTH
     Route: 048

REACTIONS (4)
  - DIZZINESS [None]
  - MUSCLE RIGIDITY [None]
  - MUSCLE SPASMS [None]
  - SEROTONIN SYNDROME [None]
